FAERS Safety Report 5631369-8 (Version None)
Quarter: 2008Q1

REPORT INFORMATION
  Report Type: 
  Country: None (occurrence: None)
  Receive Date: 20080212
  Receipt Date: 20080128
  Transmission Date: 20080703
  Serious: Yes (Hospitalization)
  Sender: FDA-Public Use
  Company Number: 2007S1010780

PATIENT
  Age: 68 Year
  Sex: Male
  Weight: 76.2043 kg

DRUGS (9)
  1. FENTANYL TRANSDERMAL SYSTEM [Suspect]
     Indication: JOINT INJURY
     Dosage: 25 UG/HR; EVERY 3 DAYS; TRANSDERMAL; 12 UG/HR; X1; TRANSDERMAL
     Route: 062
     Dates: start: 20070701, end: 20071020
  2. FENTANYL TRANSDERMAL SYSTEM [Suspect]
     Indication: PAIN
     Dosage: 25 UG/HR; EVERY 3 DAYS; TRANSDERMAL; 12 UG/HR; X1; TRANSDERMAL
     Route: 062
     Dates: start: 20070701, end: 20071020
  3. FENTANYL TRANSDERMAL SYSTEM [Suspect]
     Indication: JOINT INJURY
     Dosage: 25 UG/HR; EVERY 3 DAYS; TRANSDERMAL; 12 UG/HR; X1; TRANSDERMAL
     Route: 062
     Dates: start: 20071020, end: 20071023
  4. FENTANYL TRANSDERMAL SYSTEM [Suspect]
     Indication: PAIN
     Dosage: 25 UG/HR; EVERY 3 DAYS; TRANSDERMAL; 12 UG/HR; X1; TRANSDERMAL
     Route: 062
     Dates: start: 20071020, end: 20071023
  5. CRESTOR /-1588601/ [Concomitant]
  6. MORPHINE [Concomitant]
  7. PERCOCET [Concomitant]
  8. OXYCONTIN [Concomitant]
  9. VICODIN [Concomitant]

REACTIONS (20)
  - CONFUSIONAL STATE [None]
  - CONSTIPATION [None]
  - CRYING [None]
  - DEPRESSION [None]
  - DISTURBANCE IN ATTENTION [None]
  - DRUG INEFFECTIVE [None]
  - DYSSTASIA [None]
  - EMOTIONAL DISORDER [None]
  - GAIT DISTURBANCE [None]
  - HALLUCINATION [None]
  - HEADACHE [None]
  - HYPERHIDROSIS [None]
  - INSOMNIA [None]
  - MUSCLE SPASMS [None]
  - MUSCLE TWITCHING [None]
  - NAUSEA [None]
  - PYREXIA [None]
  - TREMOR [None]
  - VOMITING [None]
  - WITHDRAWAL SYNDROME [None]
